FAERS Safety Report 6545293-X (Version None)
Quarter: 2010Q1

REPORT INFORMATION
  Report Type: 
  Country: None (occurrence: None)
  Receive Date: 20100114
  Receipt Date: 20090902
  Transmission Date: 20100710
  Serious: No
  Sender: FDA-Public Use
  Company Number: 2009BM000215

PATIENT
  Age: 38 Year
  Sex: Female
  Weight: 79.2 kg

DRUGS (4)
  1. KUVAN [Suspect]
     Indication: PHENYLKETONURIA
     Dosage: 800MG;BID;PO
     Route: 048
     Dates: start: 20090727
  2. CELEXA [Concomitant]
  3. NUTRIENTS WITHOUT PHENYLALANINE [Concomitant]
  4. MULTIVITAMIN /00831701/ [Concomitant]

REACTIONS (2)
  - ABNORMAL DREAMS [None]
  - SLEEP TALKING [None]
